FAERS Safety Report 8812567 (Version 1)
Quarter: 2012Q4

REPORT INFORMATION
  Report Type: 
  Country: MY (occurrence: MY)
  Receive Date: 20120927
  Receipt Date: 20120927
  Transmission Date: 20130627
  Serious: Yes (Death, Hospitalization, Other)
  Sender: FDA-Public Use
  Company Number: PHHO2006MY02066

PATIENT
  Sex: Female
  Weight: 77.5 kg

DRUGS (1)
  1. GLIVEC [Suspect]
     Indication: BLAST CRISIS IN MYELOGENOUS LEUKAEMIA
     Dosage: 400 mg, QD
     Route: 048
     Dates: start: 20051122

REACTIONS (4)
  - Chronic myeloid leukaemia [Fatal]
  - Malignant neoplasm progression [Fatal]
  - Nervous system disorder [Unknown]
  - White blood cell count increased [Unknown]
